FAERS Safety Report 21837885 (Version 3)
Quarter: 2023Q1

REPORT INFORMATION
  Report Type: Spontaneous
  Country: US (occurrence: US)
  Receive Date: 20230109
  Receipt Date: 20230206
  Transmission Date: 20230417
  Serious: No
  Sender: FDA-Public Use
  Company Number: US-PFIZER INC-PV202300002390

PATIENT
  Age: 72 Year
  Sex: Female

DRUGS (2)
  1. IBRANCE [Suspect]
     Active Substance: PALBOCICLIB
     Indication: Breast cancer female
     Dosage: 125 MG, DAILY (TAKE ON DAYS 1-21 OF A 28-DAY CYCLE, TAKE WITH OR WITHOUT FOOD)
     Route: 048
     Dates: start: 20221130
  2. CAPECITABINE [Concomitant]
     Active Substance: CAPECITABINE
     Dosage: UNK

REACTIONS (4)
  - Constipation [Not Recovered/Not Resolved]
  - Epistaxis [Not Recovered/Not Resolved]
  - Fatigue [Not Recovered/Not Resolved]
  - Neoplasm progression [Unknown]
